FAERS Safety Report 4589516-5 (Version None)
Quarter: 2005Q1

REPORT INFORMATION
  Report Type: 
  Country: None (occurrence: None)
  Receive Date: 20050216
  Receipt Date: 20050107
  Transmission Date: 20050727
  Serious: Yes (Hospitalization, Other)
  Sender: FDA-Public Use
  Company Number: USA041183446

PATIENT
  Age: 48 Year
  Sex: Female
  Weight: 109 kg

DRUGS (3)
  1. ZYPREXA [Suspect]
     Indication: SCHIZOAFFECTIVE DISORDER
     Dosage: 15 MG/1 DAY
     Dates: start: 19960101
  2. ZOCOR [Concomitant]
  3. VITAMIN E (HERBAL OIL NOS) [Concomitant]

REACTIONS (16)
  - AGGRESSION [None]
  - BLOOD CHOLESTEROL INCREASED [None]
  - DELUSION [None]
  - DIABETES MELLITUS [None]
  - DIET REFUSAL [None]
  - DYSLIPIDAEMIA [None]
  - HOSTILITY [None]
  - HYPERTRIGLYCERIDAEMIA [None]
  - LOGORRHOEA [None]
  - LOW DENSITY LIPOPROTEIN INCREASED [None]
  - MENTAL IMPAIRMENT [None]
  - OBESITY [None]
  - TOTAL CHOLESTEROL/HDL RATIO INCREASED [None]
  - TREATMENT NONCOMPLIANCE [None]
  - WEIGHT DECREASED [None]
  - WEIGHT INCREASED [None]
